FAERS Safety Report 4545369-2 (Version None)
Quarter: 2005Q1

REPORT INFORMATION
  Report Type: 
  Country: None (occurrence: None)
  Receive Date: 20050103
  Receipt Date: 20041229
  Transmission Date: 20050727
  Serious: Yes (Hospitalization, Disabling)
  Sender: FDA-Public Use
  Company Number: TCI2004A04076

PATIENT
  Age: 48 Year
  Sex: Female

DRUGS (6)
  1. LANSOPRAZOLE [Suspect]
     Indication: GASTRIC ULCER
     Dosage: 30 MG (30 MG, 1 IN 1 D) PER ORAL
     Route: 048
     Dates: start: 20040526, end: 20040622
  2. ARAVA [Suspect]
     Indication: RHEUMATOID ARTHRITIS
     Dosage: SEE IMAGE
     Route: 048
     Dates: start: 20040402, end: 20040403
  3. ARAVA [Suspect]
     Indication: RHEUMATOID ARTHRITIS
     Dosage: SEE IMAGE
     Route: 048
     Dates: start: 20040404, end: 20040707
  4. OSUTELUC (ETODOLAC) (TABLETS) [Concomitant]
  5. SELBEX (TEPRENONE) (FINE GRANULES) [Concomitant]
  6. PREDNISOLONE [Concomitant]

REACTIONS (9)
  - ASCITES [None]
  - ATYPICAL MYCOBACTERIAL INFECTION [None]
  - BLOOD CHOLESTEROL INCREASED [None]
  - GLOMERULOSCLEROSIS [None]
  - HAEMODIALYSIS [None]
  - NEPHROTIC SYNDROME [None]
  - PLEURAL EFFUSION [None]
  - PSEUDOMONAS INFECTION [None]
  - SPUTUM CULTURE POSITIVE [None]
